FAERS Safety Report 4309072-6 (Version None)
Quarter: 2004Q1

REPORT INFORMATION
  Report Type: 
  Country: None (occurrence: None)
  Receive Date: 20040301
  Receipt Date: 20040216
  Transmission Date: 20041129
  Serious: Yes (Other)
  Sender: FDA-Public Use
  Company Number: 2004-00049FE

PATIENT
  Age: 14 Year
  Sex: Female

DRUGS (3)
  1. PENTASA [Suspect]
     Indication: COLITIS ULCERATIVE
     Dosage: 2250 MG
     Route: 048
     Dates: start: 20030731, end: 20040113
  2. AZULENE [Concomitant]
  3. ETHYL ICOSAPENTATE [Concomitant]

REACTIONS (7)
  - ANOREXIA [None]
  - COLITIS ULCERATIVE [None]
  - HAEMOGLOBIN DECREASED [None]
  - NEPHRITIS INTERSTITIAL [None]
  - NEPHROGENIC DIABETES INSIPIDUS [None]
  - WEIGHT DECREASED [None]
  - WHITE BLOOD CELL COUNT INCREASED [None]
